FAERS Safety Report 8905290 (Version 1)
Quarter: 2012Q4

REPORT INFORMATION
  Report Type: 
  Country: US (occurrence: US)
  Receive Date: 20121109
  Receipt Date: 20121109
  Transmission Date: 20130627
  Serious: Yes (Other)
  Sender: FDA-Public Use
  Company Number: PHHY2012US102751

PATIENT
  Age: 66 Year
  Sex: Female

DRUGS (8)
  1. TRIAMCINOLONE [Suspect]
     Indication: LUMBAR RADICULOPATHY
     Dosage: 30 mg, UNK
     Route: 008
     Dates: start: 20110629
  2. TRIAMCINOLONE [Suspect]
     Dosage: 40 mg, UNK
     Dates: start: 20110629
  3. TRIAMCINOLONE [Suspect]
     Dosage: 40 mg, UNK
     Dates: start: 20110629
  4. BUPIVACAINE [Concomitant]
     Dosage: 4 DF, UNK
     Dates: start: 20110629
  5. OMNIPAQUE [Concomitant]
     Dosage: 1 DF, UNK
     Dates: start: 20110629
  6. OMNISCAN [Concomitant]
     Dosage: 1 DF, UNK
     Dates: start: 20110629
  7. ESTROGEN [Concomitant]
  8. PROGESTIN [Concomitant]

REACTIONS (2)
  - Endometrial hyperplasia [Recovered/Resolved]
  - Vaginal haemorrhage [Recovered/Resolved]
